FAERS Safety Report 19030257 (Version 2)
Quarter: 2021Q2

REPORT INFORMATION
  Report Type: Spontaneous
  Country: US (occurrence: US)
  Receive Date: 20210319
  Receipt Date: 20210622
  Transmission Date: 20210717
  Serious: Yes (Other)
  Sender: FDA-Public Use
  Company Number: US-SA-2021SA091542

PATIENT
  Age: 71 Year
  Sex: Female

DRUGS (3)
  1. AUBAGIO [Suspect]
     Active Substance: TERIFLUNOMIDE
     Indication: MULTIPLE SCLEROSIS
     Dosage: 14 MG
     Route: 048
     Dates: start: 20180123
  2. KESIMPTA [Concomitant]
     Active Substance: OFATUMUMAB
  3. AUBAGIO [Suspect]
     Active Substance: TERIFLUNOMIDE
     Dosage: 14 MG
     Route: 048
     Dates: start: 20191224

REACTIONS (7)
  - Fall [Unknown]
  - Arthropathy [Unknown]
  - Multiple sclerosis [Not Recovered/Not Resolved]
  - Anal incontinence [Unknown]
  - Renal failure [Unknown]
  - Liver injury [Unknown]
  - Diarrhoea [Unknown]

NARRATIVE: CASE EVENT DATE: 20201230
